FAERS Safety Report 20620001 (Version 1)
Quarter: 2022Q1

REPORT INFORMATION
  Report Type: Spontaneous
  Country: US (occurrence: None)
  Receive Date: 20220321
  Receipt Date: 20220321
  Transmission Date: 20220424
  Serious: No
  Sender: FDA-Public Use
  Company Number: None

PATIENT
  Age: 43 Year
  Sex: Female

DRUGS (1)
  1. HUMIRA [Suspect]
     Active Substance: ADALIMUMAB
     Dosage: OTHER FREQUENCY : OTHER;?
     Route: 058
     Dates: start: 202201

REACTIONS (5)
  - Blister [None]
  - Injection site pain [None]
  - Injection site erythema [None]
  - Injection site bruising [None]
  - Impaired healing [None]

NARRATIVE: CASE EVENT DATE: 20220304
